FAERS Safety Report 5158529-7 (Version None)
Quarter: 2006Q4

REPORT INFORMATION
  Report Type: 
  Country: None (occurrence: None)
  Receive Date: 20061117
  Receipt Date: 20061113
  Transmission Date: 20070319
  Serious: Yes (Hospitalization)
  Sender: FDA-Public Use
  Company Number: HQWYE316113NOV06

PATIENT
  Age: 79 Year
  Sex: Female

DRUGS (6)
  1. CORDARONE [Suspect]
     Indication: ATRIAL FIBRILLATION
     Dosage: 5 UNIT 1X PER 1 WK; 200 MG 1X PER 1 DAY
     Route: 048
     Dates: start: 20060101, end: 20061004
  2. CORDARONE [Suspect]
     Indication: ATRIAL FIBRILLATION
     Dosage: 5 UNIT 1X PER 1 WK; 200 MG 1X PER 1 DAY
     Route: 048
     Dates: start: 20061009
  3. LANOXIN [Suspect]
     Indication: ATRIAL FIBRILLATION
     Dosage: 1 UNIT 1X PER 1 DAY; 1 TABLET 1X PER 1 DAY
     Route: 048
     Dates: start: 20050101, end: 20061004
  4. LANOXIN [Suspect]
     Indication: ATRIAL FIBRILLATION
     Dosage: 1 UNIT 1X PER 1 DAY; 1 TABLET 1X PER 1 DAY
     Route: 048
     Dates: start: 20061009
  5. COUMADIN [Concomitant]
  6. LASIX [Concomitant]

REACTIONS (2)
  - BRADYARRHYTHMIA [None]
  - SYNCOPE [None]
